FAERS Safety Report 10878817 (Version 1)
Quarter: 2015Q1

REPORT INFORMATION
  Report Type: Spontaneous
  Country: KR (occurrence: KR)
  Receive Date: 20150302
  Receipt Date: 20150302
  Transmission Date: 20150721
  Serious: Yes (Hospitalization)
  Sender: FDA-Public Use
  Company Number: KR-SA-2015SA023825

PATIENT
  Age: 68 Year
  Sex: Female

DRUGS (5)
  1. RIFAMPICIN [Suspect]
     Active Substance: RIFAMPIN
     Indication: TUBERCULOUS PLEURISY
     Route: 065
  2. ETHAMBUTOL [Concomitant]
     Active Substance: ETHAMBUTOL HYDROCHLORIDE
     Indication: TUBERCULOUS PLEURISY
  3. ISONIAZID. [Suspect]
     Active Substance: ISONIAZID
     Indication: TUBERCULOUS PLEURISY
     Route: 065
  4. PYRAZINAMIDE. [Concomitant]
     Active Substance: PYRAZINAMIDE
     Indication: TUBERCULOUS PLEURISY
  5. AMLODIPINE [Concomitant]
     Active Substance: AMLODIPINE BESYLATE

REACTIONS (17)
  - Asthenia [Unknown]
  - Creatinine renal clearance decreased [Unknown]
  - Protein total decreased [Unknown]
  - Blood urea increased [Unknown]
  - Urine protein/creatinine ratio increased [Recovered/Resolved]
  - Nausea [Recovering/Resolving]
  - Hypoalbuminaemia [Recovered/Resolved]
  - Hepatitis toxic [Recovering/Resolving]
  - Alanine aminotransferase increased [Unknown]
  - Glomerulonephritis minimal lesion [Recovered/Resolved]
  - Proteinuria [Recovered/Resolved]
  - Urine analysis abnormal [Unknown]
  - Blood cholesterol increased [Unknown]
  - Blood creatinine increased [Unknown]
  - Aspartate aminotransferase increased [Unknown]
  - Oedema [Recovering/Resolving]
  - Vomiting [Recovering/Resolving]
